FAERS Safety Report 23763171 (Version 2)
Quarter: 2024Q2

REPORT INFORMATION
  Report Type: Report from Study
  Country: CA (occurrence: CA)
  Receive Date: 20240419
  Receipt Date: 20240422
  Transmission Date: 20240715
  Serious: Yes (Hospitalization, Other)
  Sender: FDA-Public Use
  Company Number: CA-002147023-NVSC2023CA026611

PATIENT
  Age: 78 Year
  Sex: Male

DRUGS (2)
  1. HYRIMOZ [Suspect]
     Active Substance: ADALIMUMAB-ADAZ
     Indication: Ankylosing spondylitis
     Dosage: 40 MG (PRE FILLED PEN)
     Route: 058
     Dates: start: 20230202
  2. HYRIMOZ [Suspect]
     Active Substance: ADALIMUMAB-ADAZ
     Dosage: 40 MG, Q2W
     Route: 058
     Dates: start: 20240403

REACTIONS (8)
  - Gait disturbance [Unknown]
  - Ankylosing spondylitis [Unknown]
  - Respiratory tract infection viral [Unknown]
  - Haematoma [Unknown]
  - Initial insomnia [Unknown]
  - Blood creatinine increased [Unknown]
  - Pruritus [Unknown]
  - Product administered at inappropriate site [Unknown]

NARRATIVE: CASE EVENT DATE: 20230202
